FAERS Safety Report 19535195 (Version 1)
Quarter: 2021Q3

REPORT INFORMATION
  Report Type: Spontaneous
  Country: GB (occurrence: GB)
  Receive Date: 20210713
  Receipt Date: 20210713
  Transmission Date: 20211014
  Serious: Yes (Other)
  Sender: FDA-Public Use
  Company Number: GB-TEVA-2021-GB-1930761

PATIENT
  Age: 42 Year
  Sex: Female
  Weight: 55 kg

DRUGS (2)
  1. BECLOMETHASONE [Suspect]
     Active Substance: BECLOMETHASONE
     Route: 065
  2. ASTRAZENECA COVID?19 VACCINE [Suspect]
     Active Substance: AZD-1222
     Dosage: DOSE 1
     Dates: start: 20210205

REACTIONS (6)
  - Adverse reaction [Recovered/Resolved]
  - Dyspnoea [Unknown]
  - Lethargy [Unknown]
  - Pyrexia [Unknown]
  - Bronchospasm [Unknown]
  - Chills [Unknown]

NARRATIVE: CASE EVENT DATE: 20210205
